FAERS Safety Report 7010542-0 (Version None)
Quarter: 2010Q3

REPORT INFORMATION
  Report Type: 
  Country: None (occurrence: None)
  Receive Date: 20100923
  Receipt Date: 20100917
  Transmission Date: 20110219
  Serious: Yes (Other)
  Sender: FDA-Public Use
  Company Number: ES-WYE-G06586210

PATIENT
  Age: 40 Year
  Sex: Male

DRUGS (6)
  1. TYGACIL [Suspect]
     Indication: RESPIRATORY TRACT INFECTION
     Route: 042
     Dates: start: 20100510, end: 20100601
  2. CLEXANE [Concomitant]
     Dosage: UNKNOWN
     Route: 058
     Dates: start: 20100513, end: 20100514
  3. PANTOPRAZOLE [Concomitant]
     Dosage: UNKNOWN
     Route: 042
     Dates: start: 20100513
  4. VFEND [Suspect]
     Indication: FUNGAL INFECTION
     Route: 042
     Dates: start: 20100521, end: 20100521
  5. VFEND [Suspect]
     Route: 042
     Dates: start: 20100522, end: 20100531
  6. SANDIMMUNE [Concomitant]
     Dosage: FROM 125 TO 220 MG EVERY 12 HOURS
     Route: 042
     Dates: start: 20100502

REACTIONS (3)
  - COAGULOPATHY [None]
  - CONDITION AGGRAVATED [None]
  - HYPOGLYCAEMIA [None]
